FAERS Safety Report 12775893 (Version 1)
Quarter: 2016Q3

REPORT INFORMATION
  Report Type: Spontaneous
  Country: FR (occurrence: FR)
  Receive Date: 20160923
  Receipt Date: 20160923
  Transmission Date: 20161109
  Serious: Yes (Other)
  Sender: FDA-Public Use
  Company Number: FR-SA-2016SA173933

PATIENT
  Age: 38 Year
  Sex: Female

DRUGS (3)
  1. CEREZYME [Suspect]
     Active Substance: IMIGLUCERASE
     Dosage: DOSE: 10 VIALS
     Route: 041
  2. CEREZYME [Suspect]
     Active Substance: IMIGLUCERASE
     Dosage: DOSE: 9 VIALS
     Route: 041
  3. CEREZYME [Suspect]
     Active Substance: IMIGLUCERASE
     Dosage: DOSE: 9 VIALS
     Route: 041

REACTIONS (2)
  - Bone pain [Not Recovered/Not Resolved]
  - Therapy change [Unknown]
